FAERS Safety Report 5527954-4 (Version None)
Quarter: 2007Q4

REPORT INFORMATION
  Report Type: 
  Country: None (occurrence: None)
  Receive Date: 20071109
  Receipt Date: 20070430
  Transmission Date: 20080405
  Serious: Yes (Other)
  Sender: FDA-Public Use
  Company Number: PHEH2007US06831

PATIENT
  Age: 65 Year
  Sex: Female

DRUGS (11)
  1. ESTRADERM [Suspect]
     Indication: MENOPAUSAL SYMPTOMS
     Dosage: 0.5 MG, BID, TRANSDERMAL
     Route: 062
     Dates: start: 19860101, end: 19990101
  2. PROVERA [Suspect]
     Indication: MENOPAUSAL SYMPTOMS
     Dosage: 10 MG, ORAL ; 2.5 MG, ORAL
     Route: 048
     Dates: start: 19830101, end: 19910101
  3. PROVERA [Suspect]
     Indication: MENOPAUSAL SYMPTOMS
     Dosage: 10 MG, ORAL ; 2.5 MG, ORAL
     Route: 048
     Dates: start: 19910101, end: 19960101
  4. MEDROXYPROGESTERONE(MEDROXYPROGESTERONE ACETATE) 2.5MG [Suspect]
     Indication: MENOPAUSAL SYMPTOMS
     Dosage: 2.5 MG, ORAL ; 2.5 MG, ORAL
     Route: 048
     Dates: start: 19970501, end: 19980301
  5. MEDROXYPROGESTERONE(MEDROXYPROGESTERONE ACETATE) 2.5MG [Suspect]
     Indication: MENOPAUSAL SYMPTOMS
     Dosage: 2.5 MG, ORAL ; 2.5 MG, ORAL
     Route: 048
     Dates: start: 19980301, end: 19991101
  6. ESTRADIOL [Suspect]
     Indication: MENOPAUSAL SYMPTOMS
     Dosage: 1 MG, ORAL ; 1 MG, ORAL ; 0.5 MG, ORAL
     Route: 048
     Dates: start: 19990601, end: 19991101
  7. ESTRADIOL [Suspect]
     Indication: MENOPAUSAL SYMPTOMS
     Dosage: 1 MG, ORAL ; 1 MG, ORAL ; 0.5 MG, ORAL
     Route: 048
     Dates: start: 19990701, end: 19991101
  8. ESTRADIOL [Suspect]
     Indication: MENOPAUSAL SYMPTOMS
     Dosage: 1 MG, ORAL ; 1 MG, ORAL ; 0.5 MG, ORAL
     Route: 048
     Dates: start: 19991001, end: 19991101
  9. BUTIBEL (ATROPA BELLADONNA EXTRACT, BELLADONNA EXTRACT, SECBUTABARBITA [Concomitant]
  10. SYNTHROID [Concomitant]
  11. TUMS (CALCIUM CARBONATE) [Concomitant]

REACTIONS (18)
  - ANORECTAL DISORDER [None]
  - ANXIETY [None]
  - BREAST CANCER [None]
  - BREAST MASS [None]
  - CHEST PAIN [None]
  - DEPRESSION [None]
  - ENDOMETRIAL CANCER [None]
  - ENDOMETRIAL HYPERPLASIA [None]
  - HYSTERECTOMY [None]
  - LYMPHADENECTOMY [None]
  - OESTROGEN RECEPTOR ASSAY POSITIVE [None]
  - OSTEOPENIA [None]
  - PALPITATIONS [None]
  - SALPINGO-OOPHORECTOMY BILATERAL [None]
  - UTERINE CYST [None]
  - UTERINE DILATION AND CURETTAGE [None]
  - VAGINAL HAEMORRHAGE [None]
  - VENTRICULAR EXTRASYSTOLES [None]
